FAERS Safety Report 24689240 (Version 3)
Quarter: 2025Q3

REPORT INFORMATION
  Report Type: Spontaneous
  Country: JP (occurrence: JP)
  Receive Date: 20241203
  Receipt Date: 20250802
  Transmission Date: 20251021
  Serious: Yes (Hospitalization, Other)
  Sender: ALEXION PHARMACEUTICALS
  Company Number: JP-ASTRAZENECA-240135027_064320_P_1

PATIENT
  Age: 86 Year
  Sex: Female
  Weight: 53 kg

DRUGS (21)
  1. ANDEXXA [Suspect]
     Active Substance: ANDEXANET ALFA
     Indication: Subdural haematoma
     Dates: start: 20241123, end: 20241123
  2. RIVAROXABAN [Suspect]
     Active Substance: RIVAROXABAN
     Indication: Atrial fibrillation
     Dosage: 10 MILLIGRAM, QD
     Dates: end: 20241123
  3. RIVAROXABAN [Suspect]
     Active Substance: RIVAROXABAN
     Dosage: 10 MILLIGRAM, QD
     Dates: start: 20241129
  4. NICORANDIL [Concomitant]
     Active Substance: NICORANDIL
     Indication: Product used for unknown indication
     Dosage: 5 MILLIGRAM, QID
     Dates: start: 20181129
  5. LANSOPRAZOLE [Concomitant]
     Active Substance: LANSOPRAZOLE
     Indication: Product used for unknown indication
     Dosage: 15 MILLIGRAM, QD
     Dates: start: 20111128
  6. TOFOGLIFLOZIN [Concomitant]
     Active Substance: TOFOGLIFLOZIN
     Indication: Product used for unknown indication
     Dosage: 20 MILLIGRAM, QD
     Dates: end: 20241123
  7. BISOPROLOL FUMARATE [Concomitant]
     Active Substance: BISOPROLOL FUMARATE
     Indication: Product used for unknown indication
  8. GLIMEPIRIDE [Concomitant]
     Active Substance: GLIMEPIRIDE
     Indication: Product used for unknown indication
  9. VILDAGLIPTIN [Concomitant]
     Active Substance: VILDAGLIPTIN
     Indication: Product used for unknown indication
     Dosage: 50 MILLIGRAM, BID
  10. RUPAFIN [Concomitant]
     Active Substance: RUPATADINE FUMARATE
     Indication: Product used for unknown indication
     Dosage: 10 MILLIGRAM, QD
  11. ETIZOLAM [Concomitant]
     Active Substance: ETIZOLAM
     Indication: Product used for unknown indication
     Dosage: 0.5 MILLIGRAM, QD
  12. LEXAPRO [Concomitant]
     Active Substance: ESCITALOPRAM OXALATE
     Indication: Product used for unknown indication
     Dosage: 10 MILLIGRAM, QD
  13. MONTELUKAST [Concomitant]
     Active Substance: MONTELUKAST
     Indication: Product used for unknown indication
     Dosage: 10 MILLIGRAM, QD
  14. CALONAL [Concomitant]
     Active Substance: ACETAMINOPHEN
     Indication: Product used for unknown indication
     Dosage: 500 MILLIGRAM, TID
  15. MAGNESIUM OXIDE [Concomitant]
     Active Substance: MAGNESIUM OXIDE
     Indication: Product used for unknown indication
     Dosage: 250 MILLIGRAM, QD
  16. ALENDRONATE [Concomitant]
     Active Substance: ALENDRONATE SODIUM
     Indication: Product used for unknown indication
     Dosage: 35 MILLIGRAM, QD
  17. ISOSORBIDE DINITRATE [Concomitant]
     Active Substance: ISOSORBIDE DINITRATE
     Indication: Product used for unknown indication
  18. DIPHENIDOL HYDROCHLORIDE [Concomitant]
     Active Substance: DIPHENIDOL HYDROCHLORIDE
     Indication: Product used for unknown indication
     Dosage: 25 MILLIGRAM, TID
     Dates: start: 20241122
  19. ADETPHOS [Concomitant]
     Active Substance: ADENOSINE TRIPHOSPHATE
     Indication: Product used for unknown indication
     Dosage: 1 GRAM, TID
     Dates: start: 20241122
  20. VILDAGLIPTIN [Concomitant]
     Active Substance: VILDAGLIPTIN
  21. Clostridium butyricum [Concomitant]

REACTIONS (1)
  - Cerebral infarction [Not Recovered/Not Resolved]

NARRATIVE: CASE EVENT DATE: 20241124
